FAERS Safety Report 5145793-3 (Version None)
Quarter: 2006Q4

REPORT INFORMATION
  Report Type: 
  Country: None (occurrence: None)
  Receive Date: 20061108
  Receipt Date: 20061026
  Transmission Date: 20070319
  Serious: Yes (Hospitalization)
  Sender: FDA-Public Use
  Company Number: US-SANOFI-SYNTHELABO-F03200600242

PATIENT
  Age: 75 Year
  Sex: Female
  Weight: 58.45 kg

DRUGS (7)
  1. FLUOROURACIL [Suspect]
     Indication: COLORECTAL CANCER METASTATIC
     Route: 042
     Dates: start: 20060929, end: 20060929
  2. LEUCOVORIN CALCIUM [Suspect]
     Indication: COLORECTAL CANCER METASTATIC
     Route: 042
     Dates: start: 20060929, end: 20060929
  3. ELOXATIN [Suspect]
     Indication: COLORECTAL CANCER METASTATIC
     Route: 042
     Dates: start: 20060929, end: 20060929
  4. LEVOTHYROXINE SODIUM [Concomitant]
     Dosage: UNK
     Route: 048
  5. DEXAMETHASONE TAB [Concomitant]
     Dosage: UNK
     Route: 048
  6. DARVOCET [Concomitant]
     Dosage: UNK
     Route: 048
  7. ACTONEL [Concomitant]
     Dosage: UNK
     Route: 048

REACTIONS (2)
  - FALL [None]
  - HIP FRACTURE [None]
